FAERS Safety Report 10239789 (Version 1)
Quarter: 2014Q2

REPORT INFORMATION
  Report Type: Spontaneous
  Country: US (occurrence: None)
  Receive Date: 20140612
  Receipt Date: 20140612
  Transmission Date: 20141212
  Serious: Yes (Hospitalization, Other)
  Sender: FDA-Public Use
  Company Number: US-ZYDUS-003642

PATIENT
  Age: 62 Year
  Sex: Male

DRUGS (1)
  1. AMIODARONE [Suspect]
     Indication: ATRIAL FIBRILLATION
     Dosage: 200.00-MG-2.00 TIMES PER-1.0DAYS

REACTIONS (9)
  - Myxoedema coma [None]
  - Mental status changes [None]
  - Unresponsive to stimuli [None]
  - Bradycardia [None]
  - Hypotension [None]
  - Hypoglycaemia [None]
  - Hypothermia [None]
  - Respiratory failure [None]
  - Autoimmune thyroiditis [None]
